FAERS Safety Report 16784758 (Version 1)
Quarter: 2019Q3

REPORT INFORMATION
  Report Type: Spontaneous
  Country: GB (occurrence: GB)
  Receive Date: 20190909
  Receipt Date: 20190909
  Transmission Date: 20191005
  Serious: Yes (Other)
  Sender: FDA-Public Use
  Company Number: GB-TEVA-2019-GB-1103436

PATIENT
  Age: 76 Year
  Sex: Male
  Weight: 107 kg

DRUGS (2)
  1. SPIRONOLACTONE. [Suspect]
     Active Substance: SPIRONOLACTONE
     Dosage: 25MG
     Route: 048
  2. BUMETANIDE. [Suspect]
     Active Substance: BUMETANIDE
     Dosage: 4MG PER DAY
     Route: 048

REACTIONS (1)
  - Acute kidney injury [Recovering/Resolving]
